FAERS Safety Report 24792781 (Version 1)
Quarter: 2024Q4

REPORT INFORMATION
  Report Type: Spontaneous
  Country: US (occurrence: US)
  Receive Date: 20241231
  Receipt Date: 20241231
  Transmission Date: 20250115
  Serious: No
  Sender: BIOVITRUM
  Company Number: US-BIOVITRUM-2024-US-016633

PATIENT
  Age: 90 Year
  Sex: Male

DRUGS (8)
  1. VONJO [Suspect]
     Active Substance: PACRITINIB
     Indication: Myelofibrosis
     Dosage: 1 CAPSULE BY MOUTH TWICE DAILY
     Route: 048
     Dates: start: 20241112, end: 20241219
  2. VOLTAEN [Concomitant]
     Indication: Product used for unknown indication
  3. ACETAMINOPHEN\HYDROCODONE [Concomitant]
     Active Substance: ACETAMINOPHEN\HYDROCODONE
     Indication: Product used for unknown indication
     Dosage: 7.5-325 MG
  4. MINERALS\VITAMINS [Concomitant]
     Active Substance: MINERALS\VITAMINS
     Indication: Product used for unknown indication
  5. OCUVITE [Concomitant]
     Active Substance: VITAMINS
     Indication: Product used for unknown indication
  6. PREDNISONE [Concomitant]
     Active Substance: PREDNISONE
     Indication: Product used for unknown indication
  7. TAMSULOSIN [Concomitant]
     Active Substance: TAMSULOSIN
     Indication: Product used for unknown indication
  8. TRIAMCINOLONE [Concomitant]
     Active Substance: TRIAMCINOLONE
     Indication: Product used for unknown indication

REACTIONS (3)
  - Anaemia [Unknown]
  - Off label use [Recovered/Resolved]
  - Platelet disorder [Unknown]

NARRATIVE: CASE EVENT DATE: 20241112
